FAERS Safety Report 13741738 (Version 3)
Quarter: 2017Q4

REPORT INFORMATION
  Report Type: Spontaneous
  Country: US (occurrence: US)
  Receive Date: 20170711
  Receipt Date: 20171011
  Transmission Date: 20180320
  Serious: Yes (Hospitalization)
  Sender: FDA-Public Use
  Company Number: US-PFIZER INC-2017294758

PATIENT
  Age: 69 Year
  Sex: Female

DRUGS (3)
  1. XELJANZ XR [Suspect]
     Active Substance: TOFACITINIB CITRATE
     Dosage: 11 MG, UNK
  2. METHOTREXATE SODIUM. [Suspect]
     Active Substance: METHOTREXATE SODIUM
     Dosage: UNK
     Route: 048
     Dates: end: 201610
  3. METHOTREXATE SODIUM. [Suspect]
     Active Substance: METHOTREXATE SODIUM
     Dosage: UNK
     Route: 048
     Dates: start: 201702

REACTIONS (35)
  - Fatigue [Unknown]
  - Insomnia [Unknown]
  - Restlessness [Unknown]
  - Joint swelling [Unknown]
  - Peripheral swelling [Unknown]
  - Musculoskeletal stiffness [Unknown]
  - Cough [Unknown]
  - Haemorrhoids [Unknown]
  - Myalgia [Unknown]
  - Osteopenia [Unknown]
  - Joint range of motion decreased [Unknown]
  - Pain in extremity [Unknown]
  - Spinal pain [Unknown]
  - Tenderness [Unknown]
  - Dyspnoea [Unknown]
  - Musculoskeletal pain [Unknown]
  - Dizziness [Unknown]
  - Paraesthesia [Unknown]
  - Osteoporosis [Unknown]
  - Gout [Unknown]
  - Hypoaesthesia [Unknown]
  - Movement disorder [Unknown]
  - Somnolence [Unknown]
  - Headache [Unknown]
  - Depression [Unknown]
  - Osteoarthritis [Unknown]
  - Oedema peripheral [Unknown]
  - Gastrointestinal haemorrhage [Unknown]
  - Neck pain [Unknown]
  - Arthralgia [Unknown]
  - Anxiety [Unknown]
  - Exostosis [Unknown]
  - Back pain [Unknown]
  - Alopecia [Unknown]
  - Hypertension [Unknown]

NARRATIVE: CASE EVENT DATE: 201702
